FAERS Safety Report 10884323 (Version 1)
Quarter: 2015Q1

REPORT INFORMATION
  Report Type: Spontaneous
  Country: US (occurrence: None)
  Receive Date: 20150226
  Receipt Date: 20150226
  Transmission Date: 20150721
  Serious: Yes (Hospitalization)
  Sender: FDA-Public Use
  Company Number: None

PATIENT
  Age: 6 Year
  Sex: Female
  Weight: 34.1 kg

DRUGS (4)
  1. GUANFACINE. [Suspect]
     Active Substance: GUANFACINE
     Indication: ATTENTION DEFICIT/HYPERACTIVITY DISORDER
     Route: 048
     Dates: start: 20141201, end: 20150201
  2. GUANFACINE ER [Concomitant]
     Active Substance: GUANFACINE
  3. GUANFACINE. [Suspect]
     Active Substance: GUANFACINE
     Indication: AGGRESSION
     Route: 048
     Dates: start: 20141201, end: 20150201
  4. INTUNI [Concomitant]

REACTIONS (4)
  - Aggression [None]
  - Product substitution issue [None]
  - Homicidal ideation [None]
  - Self-injurious ideation [None]

NARRATIVE: CASE EVENT DATE: 20150222
